FAERS Safety Report 9417550 (Version 1)
Quarter: 2013Q3

REPORT INFORMATION
  Report Type: Spontaneous
  Country: US (occurrence: None)
  Receive Date: 20130722
  Receipt Date: 20130722
  Transmission Date: 20140515
  Serious: Yes (Other)
  Sender: FDA-Public Use
  Company Number: None

PATIENT
  Age: 81 Year
  Sex: Female
  Weight: 64.86 kg

DRUGS (1)
  1. METFORMIN HCL [Suspect]
     Indication: TYPE 2 DIABETES MELLITUS
     Dosage: 1 TABLET DAILY
     Dates: start: 20130516, end: 20130616

REACTIONS (12)
  - Dizziness [None]
  - Dizziness [None]
  - Chest discomfort [None]
  - Dizziness [None]
  - Asthenia [None]
  - Asthenia [None]
  - Nausea [None]
  - Feeling abnormal [None]
  - Mental disorder [None]
  - Depression [None]
  - Nystagmus [None]
  - Cerebrovascular accident [None]
